FAERS Safety Report 9154475 (Version 2)
Quarter: 2013Q4

REPORT INFORMATION
  Report Type: Spontaneous
  Country: US (occurrence: None)
  Receive Date: 20130205
  Receipt Date: 20131224
  Transmission Date: 20140711
  Serious: Yes (Other)
  Sender: FDA-Public Use
  Company Number: AUR-APL-2013-01039

PATIENT
  Age: 60 Year
  Sex: Female
  Weight: 68.03 kg

DRUGS (9)
  1. ONDANSETRON [Suspect]
     Indication: PAIN
  2. SUMATRIPTAN [Suspect]
     Indication: PAIN
  3. LYRICA [Suspect]
     Indication: FIBROMYALGIA
     Route: 048
     Dates: start: 20130118
  4. LYRICA [Suspect]
     Indication: MIGRAINE
     Route: 048
     Dates: start: 20130118
  5. METAXALONE [Suspect]
     Indication: CHRONIC PAROXYSMAL HEMICRANIA
     Dosage: 6-8 HOURS
  6. BACLOFEN [Suspect]
     Indication: CHRONIC PAROXYSMAL HEMICRANIA
     Dosage: EVERY 6-8 HOURS
  7. INDOMETHACIN [Suspect]
     Indication: CHRONIC PAROXYSMAL HEMICRANIA
     Dosage: (25 MG,4 IN 1 D)
     Dates: end: 20130117
  8. PAROXETINE (PAROXETINE) [Concomitant]
  9. LUNESTA (ESZOPICLONE) [Concomitant]

REACTIONS (16)
  - Somnolence [None]
  - Dizziness [None]
  - Fatigue [None]
  - Allodynia [None]
  - Post concussion syndrome [None]
  - Hypertension [None]
  - Occipital neuralgia [None]
  - Glossopharyngeal neuralgia [None]
  - Chronic paroxysmal hemicrania [None]
  - Condition aggravated [None]
  - Medication overuse headache [None]
  - Fibromyalgia [None]
  - Migraine [None]
  - Off label use [None]
  - Upper-airway cough syndrome [None]
  - Therapeutic response unexpected [None]
